FAERS Safety Report 23246801 (Version 1)
Quarter: 2023Q4

REPORT INFORMATION
  Report Type: Spontaneous
  Country: US (occurrence: None)
  Receive Date: 20231130
  Receipt Date: 20231130
  Transmission Date: 20240110
  Serious: Yes (Hospitalization)
  Sender: FDA-Public Use
  Company Number: None

PATIENT
  Age: 62 Year
  Sex: Male
  Weight: 67.32 kg

DRUGS (6)
  1. RETIFANLIMAB [Suspect]
     Active Substance: RETIFANLIMAB
     Indication: Glioblastoma multiforme
     Route: 042
     Dates: start: 20231108
  2. DEXAMETHASONE [Concomitant]
     Active Substance: DEXAMETHASONE
     Dates: start: 20231123, end: 20231129
  3. Bactrim DS 240mg [Concomitant]
     Dates: start: 20231123, end: 20231129
  4. ipratropium-albuteroL (DUO-NEB) nebulizer [Concomitant]
     Dates: end: 20231126
  5. Fentanyl (Sublimaze) [Concomitant]
     Dates: start: 20231123, end: 20231123
  6. benzonatate (TESSALON PERLES) capsule [Concomitant]

REACTIONS (1)
  - Pneumocystis jirovecii pneumonia [None]

NARRATIVE: CASE EVENT DATE: 20231123
